FAERS Safety Report 23776080 (Version 3)
Quarter: 2024Q2

REPORT INFORMATION
  Report Type: Spontaneous
  Country: FR (occurrence: FR)
  Receive Date: 20240424
  Receipt Date: 20240602
  Transmission Date: 20240715
  Serious: Yes (Other)
  Sender: FDA-Public Use
  Company Number: None

PATIENT
  Age: 84 Year
  Sex: Male

DRUGS (12)
  1. ERLEADA [Suspect]
     Active Substance: APALUTAMIDE
     Indication: Prostate cancer
     Route: 048
     Dates: start: 202311
  2. OXAZEPAM [Interacting]
     Active Substance: OXAZEPAM
     Indication: Anxiety
     Dosage: LC
     Route: 048
  3. OXAZEPAM [Interacting]
     Active Substance: OXAZEPAM
     Route: 048
  4. DORZOLAMIDE [Concomitant]
     Active Substance: DORZOLAMIDE
     Dosage: 20/ML
     Route: 065
  5. DABIGATRAN [Concomitant]
     Active Substance: DABIGATRAN
     Route: 048
     Dates: start: 20240125
  6. PRADAXA [Concomitant]
     Active Substance: DABIGATRAN ETEXILATE MESYLATE
     Route: 048
     Dates: start: 20240125
  7. BIMATOPROST [Concomitant]
     Active Substance: BIMATOPROST
     Dosage: 0.3MG/ML
     Route: 065
  8. TIMOLOL [Concomitant]
     Active Substance: TIMOLOL
     Dosage: 5MG/ML
     Route: 065
  9. BIMATOPROST\TIMOLOL [Concomitant]
     Active Substance: BIMATOPROST\TIMOLOL
     Dosage: 0.3MG/ML + 5MG/ML
  10. CHOLECALCIFEROL [Concomitant]
     Active Substance: CHOLECALCIFEROL
     Dosage: 12 DROPS PER DAY
     Route: 048
  11. DORZOLAMIDE HYDROCHLORIDE\TIMOLOL MALEATE [Concomitant]
     Active Substance: DORZOLAMIDE HYDROCHLORIDE\TIMOLOL MALEATE
     Dosage: 20 MG/ML + 5 MG/ML
     Route: 065
  12. OXAZEPAM [Concomitant]
     Active Substance: OXAZEPAM
     Dosage: 50 MG

REACTIONS (2)
  - Drug interaction [Not Recovered/Not Resolved]
  - Drug ineffective [Not Recovered/Not Resolved]

NARRATIVE: CASE EVENT DATE: 20231101
